FAERS Safety Report 8822502 (Version 3)
Quarter: 2014Q2

REPORT INFORMATION
  Report Type: Spontaneous
  Country: BR (occurrence: BR)
  Receive Date: 20121003
  Receipt Date: 20140519
  Transmission Date: 20141212
  Serious: Yes (Hospitalization, Other)
  Sender: FDA-Public Use
  Company Number: BR-AMGEN-BRASP2012062434

PATIENT
  Age: 57 Year
  Sex: Female
  Weight: 75 kg

DRUGS (3)
  1. ENBREL [Suspect]
     Indication: RHEUMATOID ARTHRITIS
     Dosage: UNK UNK, QWK
     Route: 065
     Dates: start: 201011
  2. ENBREL [Suspect]
     Dosage: 50 UNK, UNK
     Route: 058
     Dates: start: 2011
  3. INSULIN [Concomitant]
     Dosage: 35 IU 2X/DAY IN THE MORNING AND AT NIGHTUNK
     Dates: start: 2006

REACTIONS (4)
  - Infarction [Unknown]
  - Diabetic complication [Unknown]
  - Poor peripheral circulation [Unknown]
  - Injection site pain [Unknown]
